FAERS Safety Report 15550948 (Version 1)
Quarter: 2018Q4

REPORT INFORMATION
  Report Type: Report from Study
  Country: None (occurrence: US)
  Receive Date: 20181025
  Receipt Date: 20181025
  Transmission Date: 20190205
  Serious: Yes (Other)
  Sender: FDA-Public Use
  Company Number: US-ABBVIE-18K-163-2233833-00

PATIENT
  Sex: Female

DRUGS (1)
  1. HUMIRA [Suspect]
     Active Substance: ADALIMUMAB
     Indication: PSORIASIS
     Route: 058

REACTIONS (12)
  - Muscle injury [Unknown]
  - Psoriasis [Unknown]
  - Cataract [Unknown]
  - Dental care [Unknown]
  - Middle ear effusion [Unknown]
  - Fatigue [Unknown]
  - Ear disorder [Unknown]
  - Staphylococcal infection [Unknown]
  - Malaise [Unknown]
  - Colitis [Unknown]
  - Sensitivity to weather change [Unknown]
  - Ulcer [Unknown]
